FAERS Safety Report 5124198-5 (Version None)
Quarter: 2006Q4

REPORT INFORMATION
  Report Type: 
  Country: None (occurrence: None)
  Receive Date: 20061010
  Receipt Date: 20060106
  Transmission Date: 20070319
  Serious: Yes (Death, Congenital Anomaly)
  Sender: FDA-Public Use
  Company Number: 2006PK00358

PATIENT
  Age: 417 Month
  Sex: Female

DRUGS (2)
  1. SEROQUEL [Suspect]
     Indication: SCHIZOPHRENIA
     Route: 048
  2. THYRONAJOD [Concomitant]

REACTIONS (10)
  - ABORTION INDUCED [None]
  - ALCOHOL USE [None]
  - CARDIAC MALPOSITION [None]
  - DRUG EXPOSURE DURING PREGNANCY [None]
  - GASTROINTESTINAL MALFORMATION [None]
  - INTRA-UTERINE DEATH [None]
  - KIDNEY MALFORMATION [None]
  - MEDIASTINAL DISORDER [None]
  - MULTIPLE CONGENITAL ABNORMALITIES [None]
  - PREGNANCY [None]
